FAERS Safety Report 24258856 (Version 2)
Quarter: 2024Q3

REPORT INFORMATION
  Report Type: Spontaneous
  Country: JP (occurrence: JP)
  Receive Date: 20240828
  Receipt Date: 20240912
  Transmission Date: 20241017
  Serious: Yes (Hospitalization)
  Sender: MERCK
  Company Number: JP-MSD-M2024-33094

PATIENT
  Age: 8 Decade
  Sex: Male

DRUGS (1)
  1. NIVOLUMAB [Suspect]
     Active Substance: NIVOLUMAB
     Indication: Renal cancer stage IV
     Dosage: UNK
     Route: 065

REACTIONS (2)
  - Skin disorder [Recovering/Resolving]
  - Skin disorder [Recovered/Resolved]
